FAERS Safety Report 19423254 (Version 3)
Quarter: 2022Q2

REPORT INFORMATION
  Report Type: Spontaneous
  Country: US (occurrence: US)
  Receive Date: 20210616
  Receipt Date: 20220427
  Transmission Date: 20220721
  Serious: No
  Sender: FDA-Public Use
  Company Number: US-PFIZER INC-2021296581

PATIENT
  Age: 16 Year
  Sex: Male

DRUGS (1)
  1. XALKORI [Suspect]
     Active Substance: CRIZOTINIB
     Indication: Anaplastic large-cell lymphoma
     Dosage: 250 MG, 2X/DAY TAKE 2CAPSULES BY MOUTH TWICE A DAY
     Route: 048
     Dates: start: 20210312, end: 2021

REACTIONS (2)
  - Neoplasm progression [Unknown]
  - Insomnia [Unknown]
